FAERS Safety Report 21822993 (Version 3)
Quarter: 2023Q1

REPORT INFORMATION
  Report Type: Spontaneous
  Country: US (occurrence: US)
  Receive Date: 20230105
  Receipt Date: 20230215
  Transmission Date: 20230418
  Serious: No
  Sender: FDA-Public Use
  Company Number: US-PFIZER INC-202201401592

PATIENT
  Age: 12 Year
  Sex: Male

DRUGS (4)
  1. GENOTROPIN [Suspect]
     Active Substance: SOMATROPIN
     Indication: Short stature
     Dosage: 0.7 MG
  2. CETIRIZINE [Concomitant]
     Active Substance: CETIRIZINE HYDROCHLORIDE
     Dosage: 5 ML, 2X/DAY (5 ML IN THE MORNING AND 5 ML AT THE NIGHT)
  3. ALVESCO [Concomitant]
     Active Substance: CICLESONIDE
     Dosage: UNK (2 PUFFS IN THE MORNING AND 2 PUFFS IN THE NIGHT)
  4. XOPENEX [Concomitant]
     Active Substance: LEVALBUTEROL HYDROCHLORIDE
     Dosage: UNK (2 PUFFS IN THE MORNING AND 2 PUFFS AT NIGHT)

REACTIONS (6)
  - Wrong technique in device usage process [Unknown]
  - Device material issue [Unknown]
  - Device leakage [Unknown]
  - Product dose omission issue [Unknown]
  - Illness [Unknown]
  - Expired device used [Unknown]

NARRATIVE: CASE EVENT DATE: 20221101
